FAERS Safety Report 8473033-6 (Version None)
Quarter: 2012Q2

REPORT INFORMATION
  Report Type: 
  Country: None (occurrence: None)
  Receive Date: 20120627
  Receipt Date: 20120620
  Transmission Date: 20120825
  Serious: Yes (Death)
  Sender: FDA-Public Use
  Company Number: GB-JNJFOC-20110306419

PATIENT
  Age: 76 Year
  Sex: Female
  Weight: 67 kg

DRUGS (2)
  1. METHOTREXATE [Concomitant]
     Route: 065
     Dates: start: 20021119
  2. REMICADE [Suspect]
     Indication: RHEUMATOID ARTHRITIS
     Route: 042
     Dates: start: 20021115, end: 20030615

REACTIONS (4)
  - PNEUMONIA [None]
  - RENAL FAILURE CHRONIC [None]
  - MICROCYTIC ANAEMIA [None]
  - RHEUMATOID ARTHRITIS [None]
